FAERS Safety Report 10058145 (Version 2)
Quarter: 2014Q2

REPORT INFORMATION
  Report Type: Spontaneous
  Country: US (occurrence: US)
  Receive Date: 20140404
  Receipt Date: 20140526
  Transmission Date: 20141212
  Serious: No
  Sender: FDA-Public Use
  Company Number: US-PFIZER INC-2014093882

PATIENT
  Age: 53 Year
  Sex: Female
  Weight: 60.8 kg

DRUGS (1)
  1. LEVOXYL [Suspect]
     Indication: AUTOIMMUNE THYROIDITIS
     Dosage: 75 MCG FIVE DAYS A WEEK AND 88 MCG FOR REST OF THE TWO DAYS OF THE WEEK, DAILY
     Dates: start: 201402

REACTIONS (3)
  - Headache [Not Recovered/Not Resolved]
  - Malaise [Unknown]
  - Product quality issue [Unknown]
